FAERS Safety Report 5562774-6 (Version None)
Quarter: 2007Q4

REPORT INFORMATION
  Report Type: 
  Country: None (occurrence: None)
  Receive Date: 20071217
  Receipt Date: 20071204
  Transmission Date: 20080405
  Serious: Yes (Hospitalization)
  Sender: FDA-Public Use
  Company Number: AT-AMGEN-UK255388

PATIENT
  Age: 32 Year
  Sex: Female

DRUGS (4)
  1. KINERET [Suspect]
     Indication: PRE-EXISTING DISEASE
     Route: 058
  2. COLCHICINE [Concomitant]
  3. UNSPECIFIED PAIN MEDICATION [Concomitant]
  4. MORPHINE [Concomitant]

REACTIONS (2)
  - INJECTION SITE REACTION [None]
  - INTERSTITIAL LUNG DISEASE [None]
